FAERS Safety Report 11657054 (Version 2)
Quarter: 2015Q4

REPORT INFORMATION
  Report Type: Spontaneous
  Country: US (occurrence: US)
  Receive Date: 20151023
  Receipt Date: 20151028
  Transmission Date: 20160304
  Serious: Yes (Hospitalization, Other)
  Sender: FDA-Public Use
  Company Number: US-ABBVIE-15P-163-1482894-00

PATIENT
  Sex: Male

DRUGS (1)
  1. ANDROGEL [Suspect]
     Active Substance: TESTOSTERONE
     Indication: ANDROGEN REPLACEMENT THERAPY
     Route: 061

REACTIONS (6)
  - Pain [Unknown]
  - Deep vein thrombosis [Unknown]
  - Economic problem [Unknown]
  - Thrombosis [Unknown]
  - Retinal artery occlusion [Unknown]
  - Blindness [Unknown]
